FAERS Safety Report 5618345-6 (Version None)
Quarter: 2008Q1

REPORT INFORMATION
  Report Type: 
  Country: None (occurrence: None)
  Receive Date: 20080207
  Receipt Date: 20080130
  Transmission Date: 20080703
  Serious: Yes (Hospitalization)
  Sender: FDA-Public Use
  Company Number: HU-BAXTER-2008BH000668

PATIENT
  Age: 66 Year
  Sex: Male

DRUGS (2)
  1. DEXTROSE 5% [Suspect]
     Indication: MEDICATION DILUTION
     Dosage: DOSE UNIT:UNKNOWN
     Route: 042
     Dates: start: 20071211, end: 20071211
  2. ELOXATIN [Concomitant]
     Indication: COLORECTAL CANCER
     Route: 042
     Dates: start: 20071211, end: 20071211

REACTIONS (2)
  - PYREXIA [None]
  - TREMOR [None]
